FAERS Safety Report 7676423-4 (Version None)
Quarter: 2011Q3

REPORT INFORMATION
  Report Type: 
  Country: None (occurrence: None)
  Receive Date: 20110811
  Receipt Date: 20110801
  Transmission Date: 20111222
  Serious: Yes (Hospitalization)
  Sender: FDA-Public Use
  Company Number: JP-ELI_LILLY_AND_COMPANY-JP201106006874

PATIENT
  Sex: Male
  Weight: 52 kg

DRUGS (3)
  1. ALIMTA [Suspect]
     Indication: LUNG ADENOCARCINOMA RECURRENT
     Dosage: 500 MG/M2, OTHER
     Route: 042
     Dates: start: 20100518, end: 20110119
  2. COBALAMIN [Concomitant]
     Indication: PREMEDICATION
     Dosage: 1 MG, OTHER
     Route: 030
     Dates: start: 20100511
  3. PANVITAN [Concomitant]
     Indication: PREMEDICATION
     Dosage: 1 G, OTHER
     Route: 048
     Dates: start: 20100511, end: 20110119

REACTIONS (1)
  - LUNG DISORDER [None]
